FAERS Safety Report 19419417 (Version 2)
Quarter: 2021Q2

REPORT INFORMATION
  Report Type: Spontaneous
  Country: CN (occurrence: CN)
  Receive Date: 20210615
  Receipt Date: 20210618
  Transmission Date: 20210717
  Serious: Yes (Hospitalization)
  Sender: FDA-Public Use
  Company Number: CN-B.I. PHARMACEUTICALS,INC./RIDGEFIELD-2021-BI-107587

PATIENT
  Age: 64 Year
  Sex: Male

DRUGS (8)
  1. BUDESONIDE;FORMOTEROL FUMARATE [Concomitant]
     Active Substance: BUDESONIDE\FORMOTEROL FUMARATE
     Indication: CHRONIC OBSTRUCTIVE PULMONARY DISEASE
     Dosage: UNIT DOSE:1 SPRAY BID
     Route: 055
     Dates: start: 2016
  2. PREDNISONE. [Concomitant]
     Active Substance: PREDNISONE
     Indication: CHRONIC OBSTRUCTIVE PULMONARY DISEASE
     Route: 048
     Dates: start: 2016
  3. AZITHROMYCIN ANHYDROUS. [Concomitant]
     Active Substance: AZITHROMYCIN ANHYDROUS
     Indication: CHRONIC OBSTRUCTIVE PULMONARY DISEASE
     Route: 048
     Dates: start: 2016
  4. AMINOPHYLLINE BROMHEXINE AND CHLORPHENAMINE [Concomitant]
     Indication: CHRONIC OBSTRUCTIVE PULMONARY DISEASE
     Route: 048
     Dates: start: 2016
  5. BAMBUTEROL [Concomitant]
     Active Substance: BAMBUTEROL
     Indication: CHRONIC OBSTRUCTIVE PULMONARY DISEASE
     Route: 048
     Dates: start: 2016
  6. AMINOPHYLLINE. [Concomitant]
     Active Substance: AMINOPHYLLINE
     Indication: CHRONIC OBSTRUCTIVE PULMONARY DISEASE
     Route: 048
     Dates: start: 2016
  7. SPIRIVA [Suspect]
     Active Substance: TIOTROPIUM BROMIDE MONOHYDRATE
     Indication: CHRONIC OBSTRUCTIVE PULMONARY DISEASE
     Dosage: UNIT DOSE: 2 SPRAYS/DAY QD
     Route: 055
     Dates: start: 2016
  8. VORICONAZOLE. [Concomitant]
     Active Substance: VORICONAZOLE
     Indication: CHRONIC OBSTRUCTIVE PULMONARY DISEASE
     Route: 048
     Dates: start: 2018

REACTIONS (5)
  - Chronic obstructive pulmonary disease [Recovering/Resolving]
  - Chronic obstructive pulmonary disease [Recovering/Resolving]
  - Drug ineffective [Unknown]
  - Aspergillus test positive [Not Recovered/Not Resolved]
  - Emphysema [Unknown]

NARRATIVE: CASE EVENT DATE: 20181029
